FAERS Safety Report 4925549-4 (Version None)
Quarter: 2006Q1

REPORT INFORMATION
  Report Type: 
  Country: None (occurrence: None)
  Receive Date: 20060228
  Receipt Date: 20030415
  Transmission Date: 20060701
  Serious: No
  Sender: FDA-Public Use
  Company Number: US-GLAXOSMITHKLINE-A0405047A

PATIENT
  Age: 46 Year
  Sex: Female

DRUGS (7)
  1. LAMICTAL [Suspect]
     Indication: AFFECTIVE DISORDER
     Dosage: 50MG TWICE PER DAY
     Route: 048
     Dates: start: 20021101, end: 20030101
  2. NEURONTIN [Concomitant]
     Dosage: 300MG THREE TIMES PER DAY
  3. KLONOPIN [Concomitant]
     Dosage: .25MG PER DAY
  4. CELEXA [Concomitant]
  5. RITALIN [Concomitant]
  6. CYMBALTA [Concomitant]
  7. LEXAPRO [Concomitant]

REACTIONS (10)
  - AMENORRHOEA [None]
  - ASTHENIA [None]
  - BONE PAIN [None]
  - BUNION [None]
  - HAIR GROWTH ABNORMAL [None]
  - HEADACHE [None]
  - PAIN [None]
  - RASH [None]
  - TINNITUS [None]
  - VISION BLURRED [None]
